FAERS Safety Report 10958178 (Version 1)
Quarter: 2015Q1

REPORT INFORMATION
  Report Type: Spontaneous
  Country: US (occurrence: US)
  Receive Date: 20150326
  Receipt Date: 20150326
  Transmission Date: 20150721
  Serious: Yes (Other)
  Sender: FDA-Public Use
  Company Number: US-PFIZER INC-2014194181

PATIENT
  Age: 70 Year
  Sex: Female

DRUGS (3)
  1. ENBREL [Suspect]
     Active Substance: ETANERCEPT
     Indication: RHEUMATOID ARTHRITIS
     Dosage: 50 MG, WEEKLY
     Dates: start: 20140402
  2. ENBREL [Suspect]
     Active Substance: ETANERCEPT
     Indication: PSORIASIS
  3. DICLOFENAC SODIUM. [Suspect]
     Active Substance: DICLOFENAC SODIUM
     Dosage: UNK

REACTIONS (9)
  - Nasopharyngitis [Recovered/Resolved]
  - Renal impairment [Not Recovered/Not Resolved]
  - Oropharyngeal pain [Recovered/Resolved]
  - Tooth disorder [Not Recovered/Not Resolved]
  - Influenza like illness [Recovered/Resolved]
  - Somnolence [Recovered/Resolved]
  - Rhinorrhoea [Recovered/Resolved]
  - Feeling abnormal [Recovered/Resolved]
  - Sensitivity of teeth [Not Recovered/Not Resolved]

NARRATIVE: CASE EVENT DATE: 2014
